FAERS Safety Report 4471419-8 (Version None)
Quarter: 2004Q4

REPORT INFORMATION
  Report Type: 
  Country: None (occurrence: None)
  Receive Date: 20041007
  Receipt Date: 20041007
  Transmission Date: 20050328
  Serious: No
  Sender: FDA-Public Use
  Company Number: None

PATIENT
  Age: 41 Year
  Sex: Male
  Weight: 77.1115 kg

DRUGS (1)
  1. ZICAM   EXPERIMENTAL [Suspect]
     Dosage: ONE DOSE

REACTIONS (2)
  - NASAL DISORDER [None]
  - PAIN [None]
